FAERS Safety Report 10030953 (Version 2)
Quarter: 2014Q2

REPORT INFORMATION
  Report Type: Report from Study
  Country: US (occurrence: US)
  Receive Date: 20140323
  Receipt Date: 20140424
  Transmission Date: 20141212
  Serious: Yes (Hospitalization, Other)
  Sender: FDA-Public Use
  Company Number: US-BRISTOL-MYERS SQUIBB COMPANY-20474789

PATIENT
  Age: 70 Year
  Sex: Male
  Weight: 91.9 kg

DRUGS (3)
  1. IPILIMUMAB [Suspect]
     Indication: MYELODYSPLASTIC SYNDROME
     Dosage: 544MG?LAST DOSE : 11JUL13
     Route: 042
     Dates: start: 20130620
  2. PROPECIA [Concomitant]
  3. SYNTHROID [Concomitant]
     Indication: HYPOTHYROIDISM

REACTIONS (2)
  - Febrile neutropenia [Recovering/Resolving]
  - Pneumonitis [Recovering/Resolving]
